FAERS Safety Report 5370632-5 (Version None)
Quarter: 2007Q2

REPORT INFORMATION
  Report Type: 
  Country: None (occurrence: None)
  Receive Date: 20070618
  Receipt Date: 20060612
  Transmission Date: 20071010
  Serious: Yes (Other)
  Sender: FDA-Public Use
  Company Number: PHEH2006US05804

PATIENT
  Age: 61 Year
  Sex: Female
  Weight: 64.9 kg

DRUGS (10)
  1. GLEEVEC [Suspect]
     Indication: CHRONIC MYELOID LEUKAEMIA
     Dosage: 400 MG, QD, ORAL; 4 MG, QD, ORAL; 4 MG, QD, ORAL; TITRATION UPWARDS TO 160 MG, QD, ORAL; 160 MG, QD,
     Route: 048
     Dates: start: 20060317, end: 20060410
  2. GLEEVEC [Suspect]
     Indication: CHRONIC MYELOID LEUKAEMIA
     Dosage: 400 MG, QD, ORAL; 4 MG, QD, ORAL; 4 MG, QD, ORAL; TITRATION UPWARDS TO 160 MG, QD, ORAL; 160 MG, QD,
     Route: 048
     Dates: start: 20060508, end: 20060509
  3. GLEEVEC [Suspect]
     Indication: CHRONIC MYELOID LEUKAEMIA
     Dosage: 400 MG, QD, ORAL; 4 MG, QD, ORAL; 4 MG, QD, ORAL; TITRATION UPWARDS TO 160 MG, QD, ORAL; 160 MG, QD,
     Route: 048
     Dates: start: 20060513, end: 20060514
  4. GLEEVEC [Suspect]
     Indication: CHRONIC MYELOID LEUKAEMIA
     Dosage: 400 MG, QD, ORAL; 4 MG, QD, ORAL; 4 MG, QD, ORAL; TITRATION UPWARDS TO 160 MG, QD, ORAL; 160 MG, QD,
     Route: 048
     Dates: start: 20060508
  5. GLEEVEC [Suspect]
     Indication: CHRONIC MYELOID LEUKAEMIA
     Dosage: 400 MG, QD, ORAL; 4 MG, QD, ORAL; 4 MG, QD, ORAL; TITRATION UPWARDS TO 160 MG, QD, ORAL; 160 MG, QD,
     Route: 048
     Dates: start: 20060508
  6. GLEEVEC [Suspect]
     Indication: CHRONIC MYELOID LEUKAEMIA
     Dosage: 400 MG, QD, ORAL; 4 MG, QD, ORAL; 4 MG, QD, ORAL; TITRATION UPWARDS TO 160 MG, QD, ORAL; 160 MG, QD,
     Route: 048
     Dates: start: 20060518
  7. ALLOPURINOL [Concomitant]
  8. HYDREA [Concomitant]
  9. AMBIEN [Concomitant]
  10. ANAGRELIDE (ANAGRELIDE) [Concomitant]

REACTIONS (8)
  - DRUG ERUPTION [None]
  - FAECAL INCONTINENCE [None]
  - INSOMNIA [None]
  - LOSS OF CONSCIOUSNESS [None]
  - PLATELET COUNT INCREASED [None]
  - RASH GENERALISED [None]
  - SYNCOPE [None]
  - WHITE BLOOD CELL COUNT INCREASED [None]
